FAERS Safety Report 16556502 (Version 11)
Quarter: 2020Q4

REPORT INFORMATION
  Report Type: Spontaneous
  Country: AU (occurrence: AU)
  Receive Date: 20190710
  Receipt Date: 20201218
  Transmission Date: 20210113
  Serious: Yes (Other)
  Sender: FDA-Public Use
  Company Number: AU-BIOGEN-2019BI00760452

PATIENT
  Sex: Female

DRUGS (3)
  1. PLEGRIDY [Suspect]
     Active Substance: PEGINTERFERON BETA-1A
     Route: 058
     Dates: end: 20201104
  2. PLEGRIDY [Suspect]
     Active Substance: PEGINTERFERON BETA-1A
     Indication: RELAPSING MULTIPLE SCLEROSIS
     Route: 058
     Dates: start: 2016
  3. PLEGRIDY [Suspect]
     Active Substance: PEGINTERFERON BETA-1A
     Indication: MULTIPLE SCLEROSIS
     Route: 058
     Dates: start: 20170301, end: 20201104

REACTIONS (24)
  - Deafness bilateral [Unknown]
  - Weight increased [Unknown]
  - Cataract [Not Recovered/Not Resolved]
  - Gait disturbance [Not Recovered/Not Resolved]
  - Cognitive disorder [Not Recovered/Not Resolved]
  - Systemic lupus erythematosus [Not Recovered/Not Resolved]
  - Multiple sclerosis [Not Recovered/Not Resolved]
  - Arthritis [Not Recovered/Not Resolved]
  - Urinary incontinence [Recovered/Resolved]
  - Fall [Recovered/Resolved]
  - Coordination abnormal [Not Recovered/Not Resolved]
  - Vision blurred [Unknown]
  - Excessive cerumen production [Not Recovered/Not Resolved]
  - Depressed mood [Not Recovered/Not Resolved]
  - Blood urine present [Unknown]
  - Anxiety [Not Recovered/Not Resolved]
  - Neutropenia [Unknown]
  - Arthralgia [Not Recovered/Not Resolved]
  - Speech disorder [Not Recovered/Not Resolved]
  - Bladder cancer [Not Recovered/Not Resolved]
  - Facial neuralgia [Not Recovered/Not Resolved]
  - Visual impairment [Not Recovered/Not Resolved]
  - Clumsiness [Not Recovered/Not Resolved]
  - Ear pain [Unknown]

NARRATIVE: CASE EVENT DATE: 2017
